FAERS Safety Report 12879999 (Version 2)
Quarter: 2016Q4

REPORT INFORMATION
  Report Type: Report from Study
  Country: US (occurrence: US)
  Receive Date: 20161025
  Receipt Date: 20161101
  Transmission Date: 20170207
  Serious: No
  Sender: FDA-Public Use
  Company Number: PHEH2016US027536

PATIENT
  Age: 37 Year
  Sex: Male

DRUGS (1)
  1. GILENYA [Suspect]
     Active Substance: FINGOLIMOD HYDROCHLORIDE
     Indication: MULTIPLE SCLEROSIS
     Dosage: 0.5 MG, QD
     Route: 048
     Dates: start: 20161019

REACTIONS (7)
  - Toothache [Not Recovered/Not Resolved]
  - Depression [Recovering/Resolving]
  - Paranasal sinus discomfort [Not Recovered/Not Resolved]
  - Anxiety [Unknown]
  - Muscle tightness [Not Recovered/Not Resolved]
  - Heart rate decreased [Recovered/Resolved]
  - Blood pressure increased [Unknown]

NARRATIVE: CASE EVENT DATE: 20161019
